FAERS Safety Report 25236005 (Version 3)
Quarter: 2025Q2

REPORT INFORMATION
  Report Type: Spontaneous
  Country: US (occurrence: US)
  Receive Date: 20250424
  Receipt Date: 20250612
  Transmission Date: 20250717
  Serious: No
  Sender: NOVARTIS
  Company Number: US-002147023-NVSC2025US067060

PATIENT

DRUGS (1)
  1. LEQVIO [Suspect]
     Active Substance: INCLISIRAN SODIUM
     Indication: Hypercholesterolaemia
     Route: 065

REACTIONS (8)
  - Arthralgia [Unknown]
  - Burning sensation [Unknown]
  - Myalgia [Unknown]
  - Abdominal pain upper [Unknown]
  - Urticaria [Unknown]
  - Vomiting [Unknown]
  - Hypersensitivity [Unknown]
  - Drug ineffective [Unknown]
